FAERS Safety Report 16283388 (Version 2)
Quarter: 2021Q1

REPORT INFORMATION
  Report Type: Spontaneous
  Country: US (occurrence: US)
  Receive Date: 20190507
  Receipt Date: 20210302
  Transmission Date: 20210419
  Serious: Yes (Other)
  Sender: FDA-Public Use
  Company Number: US-ASTRAZENECA-2019SE61498

PATIENT
  Age: 635 Month
  Sex: Female
  Weight: 89.8 kg

DRUGS (46)
  1. NEXIUM [Suspect]
     Active Substance: ESOMEPRAZOLE MAGNESIUM
     Indication: GASTROOESOPHAGEAL REFLUX DISEASE
     Route: 048
     Dates: start: 200401, end: 201705
  2. NEXIUM 24HR [Suspect]
     Active Substance: ESOMEPRAZOLE MAGNESIUM
     Indication: GASTROOESOPHAGEAL REFLUX DISEASE
     Route: 048
     Dates: start: 2014
  3. PRILOSEC [Suspect]
     Active Substance: OMEPRAZOLE MAGNESIUM
     Indication: GASTROOESOPHAGEAL REFLUX DISEASE
     Dosage: GENERIC
     Route: 065
     Dates: start: 201103, end: 2014
  4. PREVACID [Suspect]
     Active Substance: LANSOPRAZOLE
     Indication: GASTROOESOPHAGEAL REFLUX DISEASE
     Route: 065
     Dates: start: 2004, end: 2008
  5. PEPCID [Concomitant]
     Active Substance: FAMOTIDINE
     Dates: start: 2008
  6. NIFEDIAC CC [Concomitant]
     Active Substance: NIFEDIPINE
     Dates: start: 2008
  7. FUROSEMIDE. [Concomitant]
     Active Substance: FUROSEMIDE
     Dates: start: 2008
  8. RANITIDINE. [Concomitant]
     Active Substance: RANITIDINE
     Dates: start: 2008
  9. CYCLOBENZAPR [Concomitant]
     Active Substance: CYCLOBENZAPRINE
     Dates: start: 2008
  10. BENZONATATE. [Concomitant]
     Active Substance: BENZONATATE
     Dates: start: 2008
  11. PROAIR HFA [Concomitant]
     Active Substance: ALBUTEROL SULFATE
     Dates: start: 2008
  12. PRILOSEC [Suspect]
     Active Substance: OMEPRAZOLE MAGNESIUM
     Indication: GASTROOESOPHAGEAL REFLUX DISEASE
     Route: 048
     Dates: start: 200401, end: 201705
  13. DEXILANT [Suspect]
     Active Substance: DEXLANSOPRAZOLE
     Indication: GASTROOESOPHAGEAL REFLUX DISEASE
     Dosage: GENERIC
     Route: 065
     Dates: start: 201611
  14. PANTOPRAZOLE [Suspect]
     Active Substance: PANTOPRAZOLE
     Indication: GASTROOESOPHAGEAL REFLUX DISEASE
     Route: 065
     Dates: end: 201605
  15. TRAMADOL. [Concomitant]
     Active Substance: TRAMADOL
  16. METOPROLOL. [Concomitant]
     Active Substance: METOPROLOL
     Dates: start: 2008
  17. HUMALOG [Concomitant]
     Active Substance: INSULIN LISPRO
     Dates: start: 2008
  18. CLONIDINE. [Concomitant]
     Active Substance: CLONIDINE
     Dates: start: 2008
  19. CLOPIDOGREL [Concomitant]
     Active Substance: CLOPIDOGREL BISULFATE
     Dates: start: 2008
  20. PRILOSEC OTC [Suspect]
     Active Substance: OMEPRAZOLE MAGNESIUM
     Indication: GASTROOESOPHAGEAL REFLUX DISEASE
     Route: 048
     Dates: start: 200401, end: 201705
  21. DEXILANT [Suspect]
     Active Substance: DEXLANSOPRAZOLE
     Indication: GASTROOESOPHAGEAL REFLUX DISEASE
     Route: 065
     Dates: start: 201404
  22. VALSARTAN. [Concomitant]
     Active Substance: VALSARTAN
  23. DIOVAN [Concomitant]
     Active Substance: VALSARTAN
     Dates: start: 2008
  24. DEXILANT [Suspect]
     Active Substance: DEXLANSOPRAZOLE
     Indication: GASTROOESOPHAGEAL REFLUX DISEASE
     Route: 065
     Dates: start: 200401, end: 201705
  25. FLUOXETINE [Concomitant]
     Active Substance: FLUOXETINE HYDROCHLORIDE
     Dates: start: 2008
  26. OXYBUTYNIN. [Concomitant]
     Active Substance: OXYBUTYNIN CHLORIDE
     Dates: start: 2008
  27. HYDROCOD [Concomitant]
     Dates: start: 2008
  28. VITAMIN D2 [Concomitant]
     Active Substance: ERGOCALCIFEROL
     Dates: start: 2008
  29. CEPHALEXIN. [Concomitant]
     Active Substance: CEPHALEXIN
     Dates: start: 2008
  30. PREDNISONE. [Concomitant]
     Active Substance: PREDNISONE
     Dates: start: 2008
  31. CLONIDINE. [Concomitant]
     Active Substance: CLONIDINE
     Dates: start: 2008
  32. PRAVASTATIN. [Concomitant]
     Active Substance: PRAVASTATIN
  33. GABAPENTIN. [Concomitant]
     Active Substance: GABAPENTIN
     Dates: start: 2008
  34. PROMETHAZINE [Concomitant]
     Active Substance: PROMETHAZINE HYDROCHLORIDE
     Dates: start: 2008
  35. PREVACID [Suspect]
     Active Substance: LANSOPRAZOLE
     Indication: GASTROOESOPHAGEAL REFLUX DISEASE
     Route: 065
     Dates: start: 200401, end: 201705
  36. ATORVASTATIN [Concomitant]
     Active Substance: ATORVASTATIN
  37. NEXIUM [Suspect]
     Active Substance: ESOMEPRAZOLE MAGNESIUM
     Indication: GASTROOESOPHAGEAL REFLUX DISEASE
     Route: 048
     Dates: start: 2004, end: 2008
  38. PRILOSEC OTC [Suspect]
     Active Substance: OMEPRAZOLE MAGNESIUM
     Indication: GASTROOESOPHAGEAL REFLUX DISEASE
     Route: 048
     Dates: end: 201401
  39. HYDRALAZINE [Concomitant]
     Active Substance: HYDRALAZINE HYDROCHLORIDE
     Dates: start: 2008
  40. CARVEDILOL. [Concomitant]
     Active Substance: CARVEDILOL
     Dates: start: 2008
  41. FAMOTIDINE. [Concomitant]
     Active Substance: FAMOTIDINE
  42. TUMS [Concomitant]
     Active Substance: CALCIUM CARBONATE
     Dates: start: 2008
  43. SODIUM BICARBONATE. [Concomitant]
     Active Substance: SODIUM BICARBONATE
     Dates: start: 2008
  44. MINOXIDIL. [Concomitant]
     Active Substance: MINOXIDIL
     Dates: start: 2008
  45. NITROFUR [Concomitant]
     Active Substance: NITROFURANTOIN
     Dates: start: 2008
  46. PULMICORT FLEXHALER [Concomitant]
     Active Substance: BUDESONIDE
     Dates: start: 2008

REACTIONS (4)
  - End stage renal disease [Not Recovered/Not Resolved]
  - Renal failure [Unknown]
  - Chronic kidney disease [Not Recovered/Not Resolved]
  - Gastrooesophageal reflux disease [Not Recovered/Not Resolved]

NARRATIVE: CASE EVENT DATE: 200912
